FAERS Safety Report 12757702 (Version 1)
Quarter: 2016Q3

REPORT INFORMATION
  Report Type: Spontaneous
  Country: FR (occurrence: FR)
  Receive Date: 20160919
  Receipt Date: 20160919
  Transmission Date: 20161109
  Serious: Yes (Death, Hospitalization)
  Sender: FDA-Public Use
  Company Number: PHHY2016FR124811

PATIENT
  Age: 87 Year
  Sex: Male

DRUGS (1)
  1. ENTRESTO [Suspect]
     Active Substance: SACUBITRIL\VALSARTAN
     Indication: CARDIAC FAILURE
     Dosage: 100 MG, BID
     Route: 065
     Dates: start: 201604, end: 201607

REACTIONS (12)
  - Impaired reasoning [Not Recovered/Not Resolved]
  - Abnormal behaviour [Unknown]
  - Intellectual disability [Unknown]
  - Cardiac failure [Unknown]
  - Verbal abuse [Unknown]
  - Hallucination [Unknown]
  - Cognitive disorder [Not Recovered/Not Resolved]
  - Mental status changes [Not Recovered/Not Resolved]
  - Sudden death [Fatal]
  - Vascular access complication [Fatal]
  - Vascular dementia [Not Recovered/Not Resolved]
  - Aggression [Unknown]

NARRATIVE: CASE EVENT DATE: 201605
